FAERS Safety Report 26057864 (Version 1)
Quarter: 2025Q4

REPORT INFORMATION
  Report Type: Spontaneous
  Country: US (occurrence: US)
  Receive Date: 20251118
  Receipt Date: 20251118
  Transmission Date: 20260118
  Serious: No
  Sender: TARO
  Company Number: US-TARO PHARMACEUTICALS USA INC.-2025TAR00033

PATIENT

DRUGS (1)
  1. MUPIROCIN [Suspect]
     Active Substance: MUPIROCIN
     Indication: Impetigo
     Dosage: 3-4 TIMES DAILY,ON LOWER LIP
     Route: 061

REACTIONS (2)
  - Burning sensation [Unknown]
  - Pruritus [Unknown]
